FAERS Safety Report 8416677 (Version 9)
Quarter: 2015Q4

REPORT INFORMATION
  Report Type: Spontaneous
  Country: US (occurrence: US)
  Receive Date: 20120220
  Receipt Date: 20151116
  Transmission Date: 20160305
  Serious: Yes (Hospitalization, Other)
  Sender: FDA-Public Use
  Company Number: US-BAYER-2012-014210

PATIENT
  Age: 38 Year
  Sex: Female
  Weight: 61 kg

DRUGS (14)
  1. DOXYCYCLINE. [Concomitant]
     Active Substance: DOXYCYCLINE
  2. LEVOTHYROXINE. [Concomitant]
     Active Substance: LEVOTHYROXINE
     Indication: HYPOMETABOLISM
     Dosage: UNK
     Dates: start: 1999
  3. CYMBALTA [Concomitant]
     Active Substance: DULOXETINE HYDROCHLORIDE
     Indication: POST-TRAUMATIC STRESS DISORDER
     Dosage: UNK
     Dates: start: 1999
  4. TOPIRAMATE. [Concomitant]
     Active Substance: TOPIRAMATE
  5. DIFLUCAN [Concomitant]
     Active Substance: FLUCONAZOLE
  6. MIRENA [Suspect]
     Active Substance: LEVONORGESTREL
     Indication: MENORRHAGIA
     Dosage: 20 MCG/24HR, CONT
     Route: 015
     Dates: start: 20060107, end: 20120330
  7. BUPROPION HYDROCHLORIDE. [Concomitant]
     Active Substance: BUPROPION HYDROCHLORIDE
  8. MIRTAZAPINE. [Concomitant]
     Active Substance: MIRTAZAPINE
  9. FAMOTIDINE. [Concomitant]
     Active Substance: FAMOTIDINE
  10. VITAMIN D [Concomitant]
     Active Substance: CHOLECALCIFEROL
  11. TOPAMAX [Concomitant]
     Active Substance: TOPIRAMATE
     Indication: SLEEP TERROR
     Dosage: UNK
     Dates: start: 1999
  12. MIRENA [Suspect]
     Active Substance: LEVONORGESTREL
     Indication: CONTRACEPTION
  13. CLONAZEPAM. [Concomitant]
     Active Substance: CLONAZEPAM
     Indication: POST-TRAUMATIC STRESS DISORDER
     Dosage: UNK
     Dates: start: 1999
  14. FLAGYL [Concomitant]
     Active Substance: METRONIDAZOLE\METRONIDAZOLE HYDROCHLORIDE

REACTIONS (26)
  - Amenorrhoea [None]
  - Device dislocation [None]
  - Uterine leiomyoma [None]
  - Dizziness [None]
  - Vision blurred [None]
  - Uterine adhesions [None]
  - Post-traumatic stress disorder [None]
  - Infertility female [None]
  - Migraine [None]
  - Device expulsion [None]
  - Pelvic inflammatory disease [Unknown]
  - Uterine scar [None]
  - Mental disorder [None]
  - Abdominal pain [None]
  - Headache [None]
  - Emotional distress [None]
  - Pelvic inflammatory disease [None]
  - Intentional device misuse [None]
  - Fear [None]
  - Depression [None]
  - Uterine perforation [None]
  - Injury [None]
  - Pelvic pain [None]
  - Genital haemorrhage [None]
  - Anxiety [None]
  - Suicidal ideation [None]

NARRATIVE: CASE EVENT DATE: 2006
